FAERS Safety Report 7899914-X (Version None)
Quarter: 2011Q4

REPORT INFORMATION
  Report Type: 
  Country: None (occurrence: None)
  Receive Date: 20111107
  Receipt Date: 20111007
  Transmission Date: 20120403
  Serious: No
  Sender: FDA-Public Use
  Company Number: US-AMGEN-USASP2011024580

PATIENT
  Age: 59 Year
  Sex: Female

DRUGS (3)
  1. ENBREL [Suspect]
     Dosage: 50 MG, QWK
     Dates: start: 20040820, end: 20110914
  2. ENBREL [Suspect]
     Indication: PSORIASIS
     Dosage: 50 MG, QWK
     Dates: start: 20040820, end: 20110914
  3. METHOTREXATE [Concomitant]
     Dosage: 2.5 MG, QWK
     Dates: start: 20110921

REACTIONS (2)
  - PSORIASIS [None]
  - MENIERE'S DISEASE [None]
